FAERS Safety Report 13559961 (Version 1)
Quarter: 2017Q2

REPORT INFORMATION
  Report Type: Spontaneous
  Country: US (occurrence: US)
  Receive Date: 20170518
  Receipt Date: 20170518
  Transmission Date: 20170830
  Serious: Yes (Death)
  Sender: FDA-Public Use
  Company Number: US-MALLINCKRODT-T201702072

PATIENT
  Sex: Male
  Weight: 82 kg

DRUGS (9)
  1. GLYCERIN. [Concomitant]
     Active Substance: GLYCERIN
     Indication: DRY MOUTH
     Dosage: 35% SPRAY
     Route: 048
  2. PROTONIX [Concomitant]
     Active Substance: PANTOPRAZOLE SODIUM
  3. FENTANYL CITRATE. [Suspect]
     Active Substance: FENTANYL CITRATE
     Indication: ABDOMINAL PAIN
     Dosage: 200 ?G, Q2H PRN
     Route: 048
  4. DURAGESIC [Concomitant]
     Active Substance: FENTANYL
     Dosage: 100
  5. SCOPOLAMINE [Concomitant]
     Active Substance: SCOPOLAMINE
  6. FENTANYL CITRATE. [Suspect]
     Active Substance: FENTANYL CITRATE
     Indication: PAIN IN EXTREMITY
  7. ZOFRAN [Concomitant]
     Active Substance: ONDANSETRON HYDROCHLORIDE
     Indication: NAUSEA
  8. TPN [Concomitant]
     Active Substance: AMINO ACIDS\DEXTROSE\ELECTROLYTES NOS\SOYBEAN OIL
     Route: 051
  9. LASIX [Concomitant]
     Active Substance: FUROSEMIDE

REACTIONS (1)
  - Neoplasm malignant [Fatal]
